FAERS Safety Report 14246590 (Version 1)
Quarter: 2017Q4

REPORT INFORMATION
  Report Type: Spontaneous
  Country: US (occurrence: US)
  Receive Date: 20171204
  Receipt Date: 20171204
  Transmission Date: 20180321
  Serious: No
  Sender: FDA-Public Use
  Company Number: US-AUROBINDO-AUR-APU-2017-43119

PATIENT

DRUGS (1)
  1. PHENTERMINE HYDROCHLORIDE 30MG [Suspect]
     Active Substance: PHENTERMINE HYDROCHLORIDE
     Indication: HUNGER
     Route: 065

REACTIONS (1)
  - Drug ineffective [Unknown]
